FAERS Safety Report 6956516-7 (Version None)
Quarter: 2010Q3

REPORT INFORMATION
  Report Type: 
  Country: None (occurrence: None)
  Receive Date: 20100830
  Receipt Date: 20100709
  Transmission Date: 20110219
  Serious: No
  Sender: FDA-Public Use
  Company Number: US-AMGEN-KDL423486

PATIENT
  Sex: Female

DRUGS (6)
  1. NEUPOGEN [Suspect]
     Indication: CHEMOTHERAPY
  2. NEULASTA [Suspect]
     Indication: CHEMOTHERAPY
  3. RITUXAN [Concomitant]
  4. BENDAMUSTINE [Concomitant]
  5. VITAMINS [Concomitant]
  6. CALCITONIN [Concomitant]

REACTIONS (7)
  - ALOPECIA [None]
  - BACK PAIN [None]
  - FATIGUE [None]
  - HYPERSOMNIA [None]
  - MEMORY IMPAIRMENT [None]
  - PAIN [None]
  - PAIN IN EXTREMITY [None]
